FAERS Safety Report 11610512 (Version 2)
Quarter: 2015Q4

REPORT INFORMATION
  Report Type: Spontaneous
  Country: JP (occurrence: None)
  Receive Date: 20151006
  Receipt Date: 20151006
  Transmission Date: 20160304
  Serious: Yes (Hospitalization)
  Sender: FDA-Public Use
  Company Number: HRA-MET20150003

PATIENT
  Age: 64 Year
  Sex: Female

DRUGS (6)
  1. METOPIRONE [Suspect]
     Active Substance: METYRAPONE
     Indication: CUSHING^S SYNDROME
     Dosage: 750 MG (250 MG,3 IN 1 D),ORAL
     Route: 048
     Dates: start: 20120601, end: 20120604
  2. DEXAMETHASONE. [Concomitant]
     Active Substance: DEXAMETHASONE
  3. MITOTANE [Suspect]
     Active Substance: MITOTANE
     Indication: CUSHING^S SYNDROME
     Dosage: 1000 MG (500 MG,2 IN 1 D)
     Dates: start: 20120619, end: 20120625
  4. NIFEDIPINE. [Concomitant]
     Active Substance: NIFEDIPINE
  5. MITOTANE [Suspect]
     Active Substance: MITOTANE
     Indication: ADRENAL GLAND CANCER
     Dosage: 1000 MG (500 MG,2 IN 1 D)
     Dates: start: 20120619, end: 20120625
  6. EPLERENONE. [Concomitant]
     Active Substance: EPLERENONE

REACTIONS (6)
  - Nausea [None]
  - Hypertension [None]
  - Headache [None]
  - Drug interaction [None]
  - Decreased appetite [None]
  - Adrenal insufficiency [None]

NARRATIVE: CASE EVENT DATE: 2012
